FAERS Safety Report 7045699-9 (Version None)
Quarter: 2010Q4

REPORT INFORMATION
  Report Type: 
  Country: None (occurrence: None)
  Receive Date: 20101014
  Receipt Date: 20101013
  Transmission Date: 20110411
  Serious: Yes (Other)
  Sender: FDA-Public Use
  Company Number: DE-BRISTOL-MYERS SQUIBB COMPANY-15254436

PATIENT
  Age: 42 Year
  Sex: Female

DRUGS (1)
  1. ABILIFY [Suspect]
     Indication: AGITATION
     Route: 048
     Dates: start: 20050116

REACTIONS (2)
  - ANTIPHOSPHOLIPID SYNDROME [None]
  - RAYNAUD'S PHENOMENON [None]
